FAERS Safety Report 8341422-6 (Version None)
Quarter: 2012Q2

REPORT INFORMATION
  Report Type: 
  Country: None (occurrence: None)
  Receive Date: 20120507
  Receipt Date: 20120426
  Transmission Date: 20120825
  Serious: Yes (Hospitalization, Disabling, Other)
  Sender: FDA-Public Use
  Company Number: US-MERCK-1110USA01788

PATIENT
  Age: 50 Year
  Sex: Female
  Weight: 80 kg

DRUGS (5)
  1. VITAMIN D (UNSPECIFIED) [Concomitant]
     Route: 065
  2. VITAMINS (UNSPECIFIED) [Concomitant]
     Route: 065
  3. ALENDRONATE SODIUM [Suspect]
     Route: 048
     Dates: start: 20090201, end: 20101001
  4. FOSAMAX [Suspect]
     Indication: PROPHYLAXIS
     Route: 048
     Dates: start: 20020401
  5. CALCIUM (UNSPECIFIED) [Concomitant]
     Route: 065

REACTIONS (12)
  - ANXIETY [None]
  - OSTEOPOROSIS [None]
  - OSTEOPENIA [None]
  - HYPERTENSION [None]
  - POST-TRAUMATIC STRESS DISORDER [None]
  - UPPER LIMB FRACTURE [None]
  - FEMORAL NECK FRACTURE [None]
  - LIVER DISORDER [None]
  - BONE CYST [None]
  - SPINAL OSTEOARTHRITIS [None]
  - LYMPHADENOPATHY [None]
  - ARTHROPATHY [None]
